FAERS Safety Report 4355854-4 (Version None)
Quarter: 2004Q2

REPORT INFORMATION
  Report Type: 
  Country: None (occurrence: None)
  Receive Date: 20040507
  Receipt Date: 20040507
  Transmission Date: 20050107
  Serious: Yes (Other)
  Sender: FDA-Public Use
  Company Number: None

PATIENT
  Sex: Male
  Weight: 97.5234 kg

DRUGS (1)
  1. CELEXA [Suspect]
     Indication: ANXIETY
     Dosage: 20 MG

REACTIONS (4)
  - ABNORMAL DREAMS [None]
  - DISTURBANCE IN ATTENTION [None]
  - DRUG WITHDRAWAL SYNDROME [None]
  - TINNITUS [None]
